FAERS Safety Report 20971698 (Version 2)
Quarter: 2022Q2

REPORT INFORMATION
  Report Type: Spontaneous
  Country: US (occurrence: US)
  Receive Date: 20220616
  Receipt Date: 20220618
  Transmission Date: 20220721
  Serious: No
  Sender: FDA-Public Use
  Company Number: US-SA-SAC20220609001741

PATIENT
  Sex: Female

DRUGS (1)
  1. AUBAGIO [Suspect]
     Active Substance: TERIFLUNOMIDE
     Indication: Multiple sclerosis
     Dosage: 14 MG, QD
     Route: 048
     Dates: start: 20190823

REACTIONS (13)
  - Memory impairment [Unknown]
  - Dizziness [Unknown]
  - Depression [Unknown]
  - Visual impairment [Unknown]
  - Fatigue [Unknown]
  - Balance disorder [Unknown]
  - Constipation [Unknown]
  - Musculoskeletal stiffness [Unknown]
  - Muscle spasticity [Unknown]
  - Diarrhoea [Unknown]
  - Headache [Unknown]
  - Paraesthesia [Unknown]
  - Product dose omission in error [Unknown]

NARRATIVE: CASE EVENT DATE: 20220501
